FAERS Safety Report 20597212 (Version 1)
Quarter: 2022Q1

REPORT INFORMATION
  Report Type: Spontaneous
  Country: FR (occurrence: FR)
  Receive Date: 20220315
  Receipt Date: 20220315
  Transmission Date: 20220423
  Serious: Yes (Life-Threatening, Hospitalization, Other)
  Sender: FDA-Public Use
  Company Number: FR-ABBVIE-22K-056-4316114-00

PATIENT
  Age: 42 Year
  Sex: Female

DRUGS (3)
  1. VALPROATE SODIUM [Suspect]
     Active Substance: VALPROATE SODIUM
     Indication: Epilepsy
     Route: 048
  2. BETADINE [Suspect]
     Active Substance: POVIDONE-IODINE
     Indication: Product used for unknown indication
     Dosage: Q12H
     Route: 061
  3. LEVETIRACETAM [Suspect]
     Active Substance: LEVETIRACETAM
     Indication: Epilepsy
     Route: 048

REACTIONS (2)
  - Hyponatraemia [Unknown]
  - Epilepsy [Unknown]

NARRATIVE: CASE EVENT DATE: 20200410
